FAERS Safety Report 4582329-X (Version None)
Quarter: 2005Q1

REPORT INFORMATION
  Report Type: 
  Country: None (occurrence: None)
  Receive Date: 20050215
  Receipt Date: 20050202
  Transmission Date: 20050727
  Serious: Yes (Other)
  Sender: FDA-Public Use
  Company Number: US-JNJFOC-20050201200

PATIENT
  Sex: Female
  Weight: 124.29 kg

DRUGS (12)
  1. REMICADE [Suspect]
     Indication: RHEUMATOID ARTHRITIS
     Dosage: 6 INFUSIONS
     Route: 042
  2. RELAFEN [Concomitant]
     Indication: RHEUMATOID ARTHRITIS
  3. MOBIC [Concomitant]
  4. ISOPHANE INSULIN [Concomitant]
  5. REGULAR INSULIN [Concomitant]
  6. INH [Concomitant]
     Indication: TUBERCULOSIS
  7. SYNTHROID [Concomitant]
  8. CALAN [Concomitant]
  9. ACTOSE [Concomitant]
  10. WATER PILL [Concomitant]
  11. FOLIC ACID [Concomitant]
  12. IRON [Concomitant]

REACTIONS (4)
  - ANAEMIA [None]
  - DIABETIC NEUROPATHY [None]
  - DRUG INEFFECTIVE [None]
  - VISION BLURRED [None]
